FAERS Safety Report 14827705 (Version 1)
Quarter: 2018Q2

REPORT INFORMATION
  Report Type: Spontaneous
  Country: JP (occurrence: JP)
  Receive Date: 20180430
  Receipt Date: 20180430
  Transmission Date: 20180711
  Serious: Yes (Death)
  Sender: FDA-Public Use
  Company Number: JP-DSJP-DSJ-2018-117531

PATIENT

DRUGS (2)
  1. LIXIANA TABLETS [Suspect]
     Active Substance: EDOXABAN TOSYLATE
     Indication: PRODUCT USED FOR UNKNOWN INDICATION
     Dosage: UNK
     Route: 065
  2. BETANIS [Suspect]
     Active Substance: MIRABEGRON
     Dosage: UNK
     Route: 065

REACTIONS (1)
  - Sudden death [Fatal]
